FAERS Safety Report 8554041-3 (Version None)
Quarter: 2012Q3

REPORT INFORMATION
  Report Type: 
  Country: None (occurrence: None)
  Receive Date: 20120731
  Receipt Date: 20120726
  Transmission Date: 20120928
  Serious: Yes (Other)
  Sender: FDA-Public Use
  Company Number: CA-TEVA-350857USA

PATIENT
  Age: 4 Year
  Sex: Male

DRUGS (2)
  1. RANITIDINE [Suspect]
     Indication: ABDOMINAL DISCOMFORT
     Dosage: 5.2 ML; 15MG/ML TAKE 2.6 ML TWICE DAILY FOR 1 MONTH
     Route: 048
     Dates: start: 20120713, end: 20120723
  2. RANITIDINE [Suspect]
     Indication: GASTROOESOPHAGEAL REFLUX DISEASE

REACTIONS (2)
  - ABDOMINAL DISCOMFORT [None]
  - PARTIAL SEIZURES [None]
